FAERS Safety Report 6248280-4 (Version None)
Quarter: 2009Q2

REPORT INFORMATION
  Report Type: 
  Country: None (occurrence: None)
  Receive Date: 20090629
  Receipt Date: 20090616
  Transmission Date: 20091009
  Serious: Yes (Hospitalization)
  Sender: FDA-Public Use
  Company Number: PHHY2009CA21634

PATIENT
  Sex: Male

DRUGS (1)
  1. EXJADE [Suspect]
     Dosage: 1000 MG, UNK
     Route: 048
     Dates: start: 20090302, end: 20090604

REACTIONS (4)
  - DIARRHOEA [None]
  - DYSPNOEA [None]
  - GASTRIC INFECTION [None]
  - PYREXIA [None]
